FAERS Safety Report 7642354-9 (Version None)
Quarter: 2011Q3

REPORT INFORMATION
  Report Type: 
  Country: None (occurrence: None)
  Receive Date: 20110728
  Receipt Date: 20110718
  Transmission Date: 20111222
  Serious: Yes (Hospitalization)
  Sender: FDA-Public Use
  Company Number: FR-VERTEX PHARMACEUTICALS INC.-AE-2011-000566

PATIENT
  Sex: Female
  Weight: 65 kg

DRUGS (10)
  1. COPEGUS [Concomitant]
     Indication: HEPATITIS C
     Route: 048
     Dates: start: 20110510, end: 20110623
  2. LEVOTHYROXINE SODIUM [Concomitant]
     Indication: HYPOTHYROIDISM
     Dates: start: 20101011
  3. PAROXETINE HCL [Concomitant]
     Indication: DEPRESSION
     Dates: start: 20100901
  4. SPIRONOLACTONE [Concomitant]
     Indication: HYPERTENSION
     Dates: start: 20100901
  5. VX-950 [Suspect]
     Indication: HEPATITIS C
     Route: 048
     Dates: start: 20110510, end: 20110623
  6. PEGASYS [Concomitant]
     Indication: HEPATITIS C
     Route: 058
     Dates: start: 20110510, end: 20110621
  7. ZOLPIDEM [Concomitant]
     Indication: INSOMNIA
     Route: 048
     Dates: start: 20100101
  8. CELECTOL [Concomitant]
     Indication: HYPERTENSION
     Dates: start: 20100901
  9. LERCANIDIPINE [Concomitant]
     Indication: HYPERTENSION
     Dates: start: 20100901
  10. ENALAPRIL MALEATE [Concomitant]
     Dates: start: 20100901

REACTIONS (2)
  - SINUSITIS [None]
  - PSYCHIATRIC DECOMPENSATION [None]
